FAERS Safety Report 16141464 (Version 1)
Quarter: 2019Q2

REPORT INFORMATION
  Report Type: Spontaneous
  Country: GB (occurrence: GB)
  Receive Date: 20190401
  Receipt Date: 20190401
  Transmission Date: 20190711
  Serious: Yes (Hospitalization, Other)
  Sender: FDA-Public Use
  Company Number: GB-MYLANLABS-2019M1028550

PATIENT
  Age: 68 Year
  Sex: Male

DRUGS (3)
  1. THEOPHYLLINE [Suspect]
     Active Substance: THEOPHYLLINE ANHYDROUS
     Indication: PRODUCT USED FOR UNKNOWN INDICATION
     Dosage: 400 MG, BID
     Route: 048
  2. CIPROFLOXACIN HYDROCHLORIDE. [Interacting]
     Active Substance: CIPROFLOXACIN HYDROCHLORIDE
     Indication: PRODUCT USED FOR UNKNOWN INDICATION
     Dosage: 500 MG, BID
     Route: 065
  3. ASPIRIN                            /00002701/ [Concomitant]
     Active Substance: ASPIRIN
     Dosage: 75 MG, QD
     Route: 065

REACTIONS (10)
  - Dyspnoea [Unknown]
  - Anxiety [Recovered/Resolved]
  - Sinus tachycardia [Unknown]
  - Supraventricular extrasystoles [Unknown]
  - Intentional product misuse [Unknown]
  - Suicidal ideation [Recovered/Resolved]
  - Labelled drug-drug interaction medication error [Recovered/Resolved]
  - Medication error [Unknown]
  - Depression [Recovered/Resolved]
  - Cough [Unknown]
